FAERS Safety Report 7488196-9 (Version None)
Quarter: 2011Q2

REPORT INFORMATION
  Report Type: 
  Country: None (occurrence: None)
  Receive Date: 20110518
  Receipt Date: 20110509
  Transmission Date: 20111010
  Serious: Yes (Hospitalization, Other)
  Sender: FDA-Public Use
  Company Number: PHHY2011US36938

PATIENT
  Sex: Female

DRUGS (9)
  1. VITAMIN D [Concomitant]
     Dosage: UNK UKN, UNK
  2. CALCIUM CARBONATE [Concomitant]
     Dosage: UNK UKN, UNK
  3. MULTI-VITAMINS [Concomitant]
     Dosage: UNK UKN, UNK
  4. GILENYA [Suspect]
     Indication: RELAPSING-REMITTING MULTIPLE SCLEROSIS
     Dosage: 0.5 MG, QD
     Route: 048
     Dates: start: 20110426
  5. FERROUS SULFATE TAB [Concomitant]
     Dosage: UNK UKN, UNK
  6. NEURONTIN [Concomitant]
     Dosage: 300 MG, QD
  7. ZYRTEC [Concomitant]
     Dosage: 10 MG, QD
  8. VALIUM [Concomitant]
     Dosage: 20 MG, QHS
  9. WELLBUTRIN SR [Concomitant]
     Dosage: 450 MG, QD

REACTIONS (6)
  - ATRIOVENTRICULAR BLOCK SECOND DEGREE [None]
  - BRADYCARDIA [None]
  - FATIGUE [None]
  - ATRIOVENTRICULAR BLOCK FIRST DEGREE [None]
  - HEART RATE IRREGULAR [None]
  - BLOOD PRESSURE DECREASED [None]
